FAERS Safety Report 5006032-7 (Version None)
Quarter: 2006Q1

REPORT INFORMATION
  Report Type: 
  Country: None (occurrence: None)
  Receive Date: 20060320
  Receipt Date: 20050321
  Transmission Date: 20060701
  Serious: Yes (Other)
  Sender: FDA-Public Use
  Company Number: 2004-12-0649

PATIENT
  Age: 47 Year
  Sex: Female
  Weight: 73.4827 kg

DRUGS (3)
  1. PEG-INTRON [Suspect]
     Indication: HEPATITIS C
     Dosage: 120 MCG QWK
     Dates: start: 20021004, end: 20030801
  2. REBETOL [Suspect]
     Indication: HEPATITIS C
     Dosage: 1000 MG QD ORAL
     Route: 048
     Dates: start: 20021004, end: 20030801
  3. PEGASYS [Suspect]
     Indication: HEPATITIS C
     Dates: start: 20030801, end: 20040101

REACTIONS (4)
  - DRUG INEFFECTIVE [None]
  - DYSPNOEA [None]
  - SARCOIDOSIS [None]
  - SINUSITIS [None]
